FAERS Safety Report 8306549-3 (Version None)
Quarter: 2012Q2

REPORT INFORMATION
  Report Type: 
  Country: None (occurrence: None)
  Receive Date: 20120420
  Receipt Date: 20120420
  Transmission Date: 20120825
  Serious: No
  Sender: FDA-Public Use
  Company Number: None

PATIENT
  Sex: Male
  Weight: 100 kg

DRUGS (4)
  1. BEVACIZUMAB (RHUMAB VEGF) [Suspect]
     Dosage: 502 MG
  2. FLUOROURACIL [Suspect]
     Dosage: 888 MG
  3. ELOXATIN [Suspect]
     Dosage: 189 MG
  4. LEUCOVORIN CALCIUM [Suspect]
     Dosage: 888 MG

REACTIONS (1)
  - HYPOKALAEMIA [None]
